FAERS Safety Report 9518642 (Version 2)
Quarter: 2014Q1

REPORT INFORMATION
  Report Type: Spontaneous
  Country: US (occurrence: None)
  Receive Date: 20130305
  Receipt Date: 20140306
  Transmission Date: 20141002
  Serious: Yes (Hospitalization)
  Sender: FDA-Public Use
  Company Number: 163-21880-12121264

PATIENT
  Age: 76 Year
  Sex: Female

DRUGS (22)
  1. REVLIMID (LENALIDOMIDE) (15 MILLIGRAM, CAPSULES) [Suspect]
     Indication: PLASMA CELL MYELOMA
     Route: 048
     Dates: start: 201210
  2. VELCADE (BORTEZOMIB) [Concomitant]
  3. ACETAMINOPHEN (PARACETAMOL) [Concomitant]
  4. ACYCLOVIR (ACICLOVIR) [Concomitant]
  5. CALCIUM (CALCIUM) [Concomitant]
  6. DEXAMETHASONE (DEXAMETHASONE) [Concomitant]
  7. PREMARIN (ESTROGENS CONJUGATED) [Concomitant]
  8. FOLIC ACID (FOLIC ACID) [Concomitant]
  9. GABAPENTIN (GABAPENTIN) [Concomitant]
  10. GLUCOSAMIN HCL-MSM (GLUCOSAMINE HYDROCHLORIDE) [Concomitant]
  11. LIDOCAINE (LIDOCAINE) [Concomitant]
  12. METOPROLOL TARTRATE (METOPROLOL TARTRATE) [Concomitant]
  13. MULTIPLE VITAMINS (MULTIPLE VITAMINS) [Concomitant]
  14. OMEGA-3 FATTY ACIDS (OMEGA-3 FATTY ACIDS) [Concomitant]
  15. OMEPRAZOLE (OMEPRAZOLE) [Concomitant]
  16. PYRIDOXINE HCL (PYRIDOXINE HYDROCHLORIDE) [Concomitant]
  17. DOCUSATE SODIUM (DOCUSATE SODIUM) [Concomitant]
  18. DEXTROSE 5% AND SODIUM CHLORIDE  0.45% WITH KCL  (GALENIC/GLUCOSE/SODIUM CL/POTASSIUM CL) [Concomitant]
  19. CEFTRIAXONE (CEFTRIAXONE) [Concomitant]
  20. GUAIFENESIN-CODEINE (CHERACOL) [Concomitant]
  21. MENTHOL (MENTHOL) [Concomitant]
  22. SODIUM CHLORIDE 0.9% BOLUS 500ML (SODIUM CHLORIDE) [Concomitant]

REACTIONS (1)
  - Pneumonia [None]
